FAERS Safety Report 13486489 (Version 2)
Quarter: 2017Q2

REPORT INFORMATION
  Report Type: Spontaneous
  Country: US (occurrence: US)
  Receive Date: 20170426
  Receipt Date: 20170511
  Transmission Date: 20170830
  Serious: Yes (Hospitalization)
  Sender: FDA-Public Use
  Company Number: US-AMGEN-USASP2017060045

PATIENT
  Age: 69 Year
  Sex: Female

DRUGS (2)
  1. NPLATE [Suspect]
     Active Substance: ROMIPLOSTIM
     Indication: PRODUCT USED FOR UNKNOWN INDICATION
     Dosage: 7 MUG, UNK
     Route: 065
  2. NPLATE [Suspect]
     Active Substance: ROMIPLOSTIM
     Dosage: 1 MUG, UNK
     Route: 065
     Dates: start: 201610

REACTIONS (3)
  - Illness anxiety disorder [Unknown]
  - Abdominal pain upper [Unknown]
  - Mobility decreased [Unknown]

NARRATIVE: CASE EVENT DATE: 201704
